FAERS Safety Report 11130056 (Version 1)
Quarter: 2015Q2

REPORT INFORMATION
  Report Type: Spontaneous
  Country: IN (occurrence: IN)
  Receive Date: 20150521
  Receipt Date: 20150521
  Transmission Date: 20150821
  Serious: Yes (Hospitalization)
  Sender: FDA-Public Use
  Company Number: IN-MYLANLABS-2015M1016935

PATIENT

DRUGS (1)
  1. TACROLIMUS. [Suspect]
     Active Substance: TACROLIMUS
     Indication: FOCAL SEGMENTAL GLOMERULOSCLEROSIS
     Dosage: GRADUAL ESCALATION TO 0.15 MG/KG/DAY (APPROX 9MG)
     Route: 065

REACTIONS (5)
  - Hemiparesis [Recovering/Resolving]
  - Hemiplegia [Recovering/Resolving]
  - Dysarthria [Recovering/Resolving]
  - Cerebral infarction [Recovering/Resolving]
  - Thrombotic thrombocytopenic purpura [Recovering/Resolving]
